FAERS Safety Report 8272385-X (Version None)
Quarter: 2012Q2

REPORT INFORMATION
  Report Type: 
  Country: None (occurrence: None)
  Receive Date: 20120410
  Receipt Date: 20120326
  Transmission Date: 20120825
  Serious: Yes (Hospitalization, Other)
  Sender: FDA-Public Use
  Company Number: CHPA2012US005883

PATIENT
  Sex: Female

DRUGS (3)
  1. FIORICET [Concomitant]
     Indication: MIGRAINE
     Dosage: UNK
  2. EXCEDRIN (MIGRAINE) [Suspect]
     Dosage: 2DF AT THE MOST 4
  3. EXCEDRIN (MIGRAINE) [Suspect]
     Indication: MIGRAINE
     Dosage: 2 DF, UNK
     Route: 048

REACTIONS (10)
  - HAEMORRHAGE [None]
  - DIVERTICULITIS [None]
  - STRESS [None]
  - OVERDOSE [None]
  - GASTRIC ULCER [None]
  - DIZZINESS [None]
  - ABDOMINAL PAIN UPPER [None]
  - ASTHENIA [None]
  - ANXIETY [None]
  - ANEURYSM [None]
